FAERS Safety Report 15030214 (Version 1)
Quarter: 2018Q2

REPORT INFORMATION
  Report Type: Spontaneous
  Country: BY (occurrence: BY)
  Receive Date: 20180619
  Receipt Date: 20180619
  Transmission Date: 20180711
  Serious: Yes (Death)
  Sender: FDA-Public Use
  Company Number: BY-PFIZER INC-2018243650

PATIENT
  Age: 3 Month
  Sex: Female
  Weight: 5.4 kg

DRUGS (7)
  1. MEROPENEM. [Suspect]
     Active Substance: MEROPENEM
     Indication: COMBINED IMMUNODEFICIENCY
     Dosage: 60 MG/KG, 3X/DAY
     Route: 042
     Dates: start: 20170117, end: 20170120
  2. AZITHROMYCIN ANHYDROUS. [Suspect]
     Active Substance: AZITHROMYCIN ANHYDROUS
     Indication: COMBINED IMMUNODEFICIENCY
     Dosage: 10 MG/KG, 1X/DAY
     Route: 042
     Dates: start: 20170116, end: 20170117
  3. OSELTAMIVIR [Suspect]
     Active Substance: OSELTAMIVIR
     Indication: COMBINED IMMUNODEFICIENCY
     Dosage: 6 MG/KG, DAILY
     Dates: start: 20170117, end: 20170120
  4. LINEZOLID. [Suspect]
     Active Substance: LINEZOLID
     Indication: COMBINED IMMUNODEFICIENCY
     Dosage: 30 MG/KG, DAILY
     Dates: start: 20170117, end: 20170120
  5. CLARITHROMYCIN. [Suspect]
     Active Substance: CLARITHROMYCIN
     Indication: COMBINED IMMUNODEFICIENCY
     Dosage: 15 MG/KG, DAILY (IN 2 DIVIDED DOSES)
     Dates: start: 20170114, end: 20170115
  6. GANCICLOVIR. [Suspect]
     Active Substance: GANCICLOVIR
     Indication: COMBINED IMMUNODEFICIENCY
     Dosage: 10 MG/KG, 2X/DAY
     Route: 041
     Dates: start: 201701
  7. OCTAGAM IMMUNE GLOBULIN (HUMAN) [Suspect]
     Active Substance: HUMAN IMMUNOGLOBULIN G
     Indication: COMBINED IMMUNODEFICIENCY
     Dosage: UNK (0.4G/KG)
     Route: 041
     Dates: start: 20170119, end: 20170120

REACTIONS (1)
  - Drug ineffective [Fatal]

NARRATIVE: CASE EVENT DATE: 2017
